FAERS Safety Report 7176626-1 (Version None)
Quarter: 2010Q4

REPORT INFORMATION
  Report Type: 
  Country: None (occurrence: None)
  Receive Date: 20101220
  Receipt Date: 20101208
  Transmission Date: 20110411
  Serious: Yes (Hospitalization)
  Sender: FDA-Public Use
  Company Number: PHHY2010FR84053

PATIENT
  Sex: Female

DRUGS (10)
  1. EUCREAS [Suspect]
     Indication: DIABETES MELLITUS
     Dosage: 1 DF, BID
     Dates: start: 20101020, end: 20101026
  2. LAMISIL [Suspect]
     Indication: FUNGAL INFECTION
     Dosage: 1 DF, TID
     Dates: start: 20101005, end: 20101026
  3. AMYCOR [Suspect]
     Indication: FUNGAL INFECTION
     Dosage: UNK
     Route: 061
     Dates: start: 20101005, end: 20101026
  4. DERMOVAL [Suspect]
     Indication: FUNGAL INFECTION
     Dosage: UNK
     Route: 061
     Dates: start: 20101005, end: 20101026
  5. GLUCOR [Suspect]
     Indication: DIABETES MELLITUS
     Dosage: 1 DF, BID
     Dates: start: 20101020, end: 20101026
  6. EZETIMIBE/SIMVASTATIN [Suspect]
     Indication: HYPERCHOLESTEROLAEMIA
     Dosage: 1 DF, QD
     Dates: start: 20101020, end: 20101026
  7. ROCEPHIN [Suspect]
     Indication: BRONCHOPNEUMONIA
     Dosage: UNK
     Route: 030
     Dates: start: 20101020, end: 20101026
  8. CELESTAMINE TAB [Suspect]
     Indication: PRURITUS
     Dosage: 3 UNK, UNK
     Dates: start: 20101020, end: 20101026
  9. FUCIDINE [Suspect]
     Indication: PARONYCHIA
     Dosage: UNK
     Route: 061
     Dates: start: 20101020, end: 20101026
  10. LEVOTHYROX [Concomitant]
     Dosage: UNK
     Route: 048

REACTIONS (7)
  - ACUTE GENERALISED EXANTHEMATOUS PUSTULOSIS [None]
  - HYPERTHERMIA [None]
  - LOCALISED OEDEMA [None]
  - LYMPHADENOPATHY [None]
  - PAIN [None]
  - SKIN EXFOLIATION [None]
  - TACHYCARDIA [None]
